FAERS Safety Report 7647408-9 (Version None)
Quarter: 2011Q3

REPORT INFORMATION
  Report Type: 
  Country: None (occurrence: None)
  Receive Date: 20110729
  Receipt Date: 20110729
  Transmission Date: 20111222
  Serious: No
  Sender: FDA-Public Use
  Company Number: None

PATIENT
  Sex: Male

DRUGS (1)
  1. CLONAZEPAM [Suspect]
     Indication: INSOMNIA
     Dosage: 1MG PO QD
     Route: 048
     Dates: start: 20110629, end: 20110711

REACTIONS (4)
  - PAIN IN EXTREMITY [None]
  - INSOMNIA [None]
  - DRUG INEFFECTIVE [None]
  - PRODUCT QUALITY ISSUE [None]
